FAERS Safety Report 19874313 (Version 1)
Quarter: 2021Q3

REPORT INFORMATION
  Report Type: Spontaneous
  Country: US (occurrence: US)
  Receive Date: 20210922
  Receipt Date: 20210922
  Transmission Date: 20211014
  Serious: No
  Sender: FDA-Public Use
  Company Number: US-SA-2021SA310372

PATIENT
  Age: 66 Year
  Sex: Female

DRUGS (7)
  1. MOTEGRITY [Concomitant]
     Active Substance: PRUCALOPRIDE SUCCINATE
  2. LAMOTRIGINE. [Concomitant]
     Active Substance: LAMOTRIGINE
  3. AMLODIPINE BESYLATE. [Concomitant]
     Active Substance: AMLODIPINE BESYLATE
  4. HALDOL [Concomitant]
     Active Substance: HALOPERIDOL
  5. ABILIFY [Concomitant]
     Active Substance: ARIPIPRAZOLE
  6. DUPIXENT [Suspect]
     Active Substance: DUPILUMAB
     Indication: DERMATITIS ALLERGIC
     Dosage: 300 MG
     Route: 058
  7. COGENTIN [Concomitant]
     Active Substance: BENZTROPINE MESYLATE

REACTIONS (1)
  - Product use in unapproved indication [Unknown]
